FAERS Safety Report 7519780-1 (Version None)
Quarter: 2011Q2

REPORT INFORMATION
  Report Type: 
  Country: None (occurrence: None)
  Receive Date: 20110602
  Receipt Date: 20110601
  Transmission Date: 20111010
  Serious: No
  Sender: FDA-Public Use
  Company Number: US-PFIZER INC-2011119015

PATIENT
  Sex: Male
  Weight: 99.773 kg

DRUGS (8)
  1. FOLIC ACID [Concomitant]
     Dosage: UNK
  2. CHANTIX [Suspect]
     Dosage: UNK
     Route: 048
     Dates: start: 20110301, end: 20110501
  3. LISINOPRIL [Concomitant]
     Dosage: UNK
  4. METOPROLOL [Concomitant]
     Dosage: UNK
  5. ACETYLSALICYLIC ACID [Concomitant]
     Dosage: UNK
  6. CHANTIX [Suspect]
     Indication: SMOKING CESSATION THERAPY
     Dosage: 0.5 MG, 1X/DAY
     Route: 048
     Dates: start: 20110301, end: 20110301
  7. VITAMIN B6 [Concomitant]
     Dosage: UNK
  8. ZETIA [Concomitant]
     Dosage: UNK

REACTIONS (3)
  - INSOMNIA [None]
  - ABNORMAL DREAMS [None]
  - DRUG INEFFECTIVE [None]
